FAERS Safety Report 9289098 (Version 1)
Quarter: 2013Q2

REPORT INFORMATION
  Report Type: Spontaneous
  Country: US (occurrence: US)
  Receive Date: 20130514
  Receipt Date: 20130514
  Transmission Date: 20140414
  Serious: No
  Sender: FDA-Public Use
  Company Number: US-ASTRAZENECA-2013SE30612

PATIENT
  Age: 68 Year
  Sex: Male
  Weight: 108.9 kg

DRUGS (7)
  1. SYMBICORT [Suspect]
     Indication: CHRONIC OBSTRUCTIVE PULMONARY DISEASE
     Dosage: 320 MCG BID
     Route: 055
     Dates: start: 201302, end: 20130429
  2. ATENOLOL [Suspect]
     Route: 048
  3. OXYGEN [Concomitant]
  4. LASIX [Concomitant]
  5. POTASSIUM [Concomitant]
  6. LOSARTAN [Concomitant]
  7. HCTZ [Concomitant]

REACTIONS (2)
  - Rash [Unknown]
  - Rash pruritic [Unknown]
